FAERS Safety Report 7162921-9 (Version None)
Quarter: 2010Q4

REPORT INFORMATION
  Report Type: 
  Country: None (occurrence: None)
  Receive Date: 20101215
  Receipt Date: 20100120
  Transmission Date: 20110411
  Serious: Yes (Other)
  Sender: FDA-Public Use
  Company Number: US-PFIZER INC-2010009663

PATIENT
  Age: 21 Year
  Sex: Female

DRUGS (3)
  1. LYRICA [Suspect]
     Indication: DIABETIC NEUROPATHY
     Dosage: UNK
  2. TOPAMAX [Concomitant]
     Dosage: UNK
  3. NORCO [Concomitant]
     Dosage: UNK

REACTIONS (2)
  - BLOOD POTASSIUM DECREASED [None]
  - MUSCLE SPASMS [None]
